FAERS Safety Report 26118669 (Version 1)
Quarter: 2025Q4

REPORT INFORMATION
  Report Type: Spontaneous
  Country: JP (occurrence: JP)
  Receive Date: 20251203
  Receipt Date: 20251203
  Transmission Date: 20260118
  Serious: Yes (Death)
  Sender: NOVARTIS
  Company Number: JP-002147023-NVSJ2025JP011649

PATIENT
  Age: 74 Year
  Sex: Female

DRUGS (2)
  1. TABRECTA [Suspect]
     Active Substance: CAPMATINIB
     Indication: Non-small cell lung cancer stage III
     Dosage: UNK
     Route: 048
     Dates: start: 2024
  2. TABRECTA [Suspect]
     Active Substance: CAPMATINIB
     Indication: MET exon 14 skipping mutation positive

REACTIONS (1)
  - Sudden death [Fatal]
